FAERS Safety Report 25389204 (Version 2)
Quarter: 2025Q3

REPORT INFORMATION
  Report Type: Spontaneous
  Country: US (occurrence: US)
  Receive Date: 20250603
  Receipt Date: 20250818
  Transmission Date: 20251021
  Serious: Yes (Other)
  Sender: COOPERSURGICAL
  Company Number: US-COOPERSURGICAL, INC.-2025CPS004426

PATIENT
  Sex: Female
  Weight: 59.864 kg

DRUGS (2)
  1. PARAGARD T 380A [Suspect]
     Active Substance: COPPER
     Indication: Contraception
     Route: 015
     Dates: start: 20171019
  2. LEVOTHYROXINE [Concomitant]
     Active Substance: LEVOTHYROXINE
     Dates: start: 201807, end: 202211

REACTIONS (21)
  - Reproductive complication associated with device [Unknown]
  - Ovarian cyst [Recovered/Resolved]
  - Surgery [Recovered/Resolved]
  - Device breakage [Not Recovered/Not Resolved]
  - Foreign body in urogenital tract [Not Recovered/Not Resolved]
  - Complication of device removal [Not Recovered/Not Resolved]
  - Embedded device [Not Recovered/Not Resolved]
  - Anxiety [Recovering/Resolving]
  - Post-traumatic stress disorder [Unknown]
  - Psychological trauma [Unknown]
  - Depression [Unknown]
  - Feeling hot [Unknown]
  - Fatigue [Unknown]
  - Polyp [Unknown]
  - Abdominal pain lower [Not Recovered/Not Resolved]
  - Pelvic pain [Unknown]
  - Premenstrual pain [Unknown]
  - Nausea [Unknown]
  - Dysmenorrhoea [Unknown]
  - Device dislocation [Not Recovered/Not Resolved]
  - Heavy menstrual bleeding [Unknown]

NARRATIVE: CASE EVENT DATE: 20190101
